FAERS Safety Report 8803706 (Version 2)
Quarter: 2012Q4

REPORT INFORMATION
  Report Type: Report from Study
  Country: JP (occurrence: JP)
  Receive Date: 20120924
  Receipt Date: 20121121
  Transmission Date: 20130627
  Serious: Yes (Hospitalization, Other)
  Sender: FDA-Public Use
  Company Number: JP-009507513-2012SP024700

PATIENT
  Age: 54 Year
  Sex: Female
  Weight: 55 kg

DRUGS (8)
  1. PEGINTERFERON ALFA-2B [Suspect]
     Indication: CHRONIC HEPATITIS C
     Dosage: 1.5 Microgram per kilogram, qw
     Route: 058
     Dates: start: 20120306, end: 20120820
  2. REBETOL [Suspect]
     Indication: CHRONIC HEPATITIS C
     Dosage: 400 mg, QD
     Route: 048
     Dates: start: 20120306, end: 20120819
  3. TELAVIC [Suspect]
     Indication: CHRONIC HEPATITIS C
     Dosage: 2250 milligrams per day
     Route: 048
     Dates: start: 20120306, end: 20120310
  4. TELAVIC [Suspect]
     Dosage: 1500 milligrams , QD
     Route: 048
     Dates: start: 20120311, end: 20120527
  5. TELAVIC [Suspect]
     Dosage: 1500 milligrams per day
     Route: 048
     Dates: end: 20120610
  6. LOXOPROFEN [Concomitant]
     Indication: PROPHYLAXIS
     Dosage: 180 mg, QD
     Route: 048
     Dates: start: 20120306
  7. MUCOSTA [Concomitant]
     Indication: PROPHYLAXIS
     Dosage: 300 mg, QD
     Route: 048
     Dates: start: 20120308
  8. TAKEPRON [Concomitant]
     Indication: PROPHYLAXIS
     Dosage: 30 mg, QD
     Route: 048
     Dates: start: 20120310, end: 20120610

REACTIONS (2)
  - Vomiting [Recovered/Resolved]
  - White blood cell count decreased [Not Recovered/Not Resolved]
